FAERS Safety Report 5043937-5 (Version None)
Quarter: 2006Q2

REPORT INFORMATION
  Report Type: 
  Country: None (occurrence: None)
  Receive Date: 20060601
  Receipt Date: 20060418
  Transmission Date: 20061013
  Serious: No
  Sender: FDA-Public Use
  Company Number: 2006-BP-04382BP

PATIENT
  Sex: Female

DRUGS (6)
  1. SPIRIVA [Suspect]
     Indication: CHRONIC OBSTRUCTIVE PULMONARY DISEASE
     Dosage: 18 MCG (18 MCG), IH
     Route: 055
     Dates: start: 20060301
  2. ALBUTEROL SPIROS [Suspect]
     Indication: CHRONIC OBSTRUCTIVE PULMONARY DISEASE
     Dosage: IH
     Route: 055
     Dates: start: 20030101
  3. GENETEAL (HYPROMELLOSE) [Concomitant]
  4. OCCUSOFT [Concomitant]
  5. DIGOXIN [Concomitant]
  6. VERAPAMIL [Concomitant]

REACTIONS (4)
  - DRY EYE [None]
  - DYSPHONIA [None]
  - ERYTHEMA OF EYELID [None]
  - VISION BLURRED [None]
